FAERS Safety Report 6265022-7 (Version None)
Quarter: 2009Q3

REPORT INFORMATION
  Report Type: 
  Country: None (occurrence: None)
  Receive Date: 20090708
  Receipt Date: 20090625
  Transmission Date: 20100115
  Serious: Yes (Hospitalization)
  Sender: FDA-Public Use
  Company Number: MSTR-NO-0906S-0115

PATIENT
  Age: 62 Year
  Sex: Male

DRUGS (3)
  1. METASTRON [Suspect]
     Indication: METASTATIC PAIN
     Dosage: 108 MBQ, SINGLE DOSE, I.V.
     Route: 042
     Dates: start: 20081002, end: 20081002
  2. FLUOROURACIL W/FOLINIC ACID/IRINOTECAN (FOLFIRI) [Concomitant]
  3. BEVACIZUMAB [Concomitant]

REACTIONS (6)
  - ANAEMIA [None]
  - CONDITION AGGRAVATED [None]
  - DISEASE PROGRESSION [None]
  - NAUSEA [None]
  - PAIN [None]
  - VOMITING [None]
